FAERS Safety Report 23989173 (Version 1)
Quarter: 2024Q2

REPORT INFORMATION
  Report Type: Spontaneous
  Country: MA (occurrence: MA)
  Receive Date: 20240619
  Receipt Date: 20240619
  Transmission Date: 20240716
  Serious: Yes (Other)
  Sender: FDA-Public Use
  Company Number: MA-SUN PHARMACEUTICAL INDUSTRIES LTD-2024RR-452203

PATIENT
  Age: 27 Year
  Sex: Female

DRUGS (4)
  1. CHLORPROMAZINE [Suspect]
     Active Substance: CHLORPROMAZINE
     Indication: Psychomotor retardation
     Dosage: 300 MILLIGRAM, DAILY
     Route: 065
  2. TRIHEXYPHENIDYL [Suspect]
     Active Substance: TRIHEXYPHENIDYL
     Indication: Anticholinergic syndrome
     Dosage: 10 MILLIGRAM, DAILY
     Route: 065
  3. THIOCOLCHICOSIDE [Suspect]
     Active Substance: THIOCOLCHICOSIDE
     Indication: Muscle relaxant therapy
     Dosage: 4 MG
     Route: 065
  4. DIAZEPAM [Concomitant]
     Active Substance: DIAZEPAM
     Indication: Psychomotor retardation
     Dosage: 30 MILLIGRAM, DAILY
     Route: 065

REACTIONS (3)
  - Joint dislocation [Unknown]
  - Dystonia [Unknown]
  - Therapeutic product effect incomplete [Unknown]
